FAERS Safety Report 8906734 (Version 3)
Quarter: 2013Q4

REPORT INFORMATION
  Report Type: Spontaneous
  Country: US (occurrence: US)
  Receive Date: 20121114
  Receipt Date: 20131018
  Transmission Date: 20140711
  Serious: Yes (Hospitalization, Other)
  Sender: FDA-Public Use
  Company Number: US-BAYER-2012-117882

PATIENT
  Age: 45 Year
  Sex: Female
  Weight: 89.34 kg

DRUGS (2)
  1. MIRENA [Suspect]
     Indication: CONTRACEPTION
     Dosage: 20 MCG/24HR, CONT
     Route: 015
     Dates: start: 20080226, end: 20121128
  2. LISINOPRIL [Concomitant]
     Indication: BLOOD PRESSURE MANAGEMENT
     Dosage: UNK
     Dates: start: 2005

REACTIONS (11)
  - Device dislocation [None]
  - Post procedural haemorrhage [None]
  - Vaginal haemorrhage [None]
  - Post procedural discomfort [None]
  - Injury [None]
  - Uterine haemorrhage [None]
  - Depression [None]
  - Anxiety [None]
  - Device dislocation [None]
  - Device dislocation [None]
  - Device issue [None]
